FAERS Safety Report 13055536 (Version 2)
Quarter: 2017Q1

REPORT INFORMATION
  Report Type: Spontaneous
  Country: US (occurrence: US)
  Receive Date: 20161222
  Receipt Date: 20170111
  Transmission Date: 20170428
  Serious: No
  Sender: FDA-Public Use
  Company Number: US-TEVA-716694ACC

PATIENT
  Sex: Female

DRUGS (1)
  1. PARAGARD T 380A [Suspect]
     Active Substance: COPPER
     Indication: CONTRACEPTION
     Dosage: OVER A YEAR AND A HALF
     Route: 065

REACTIONS (9)
  - Haemorrhoids [Unknown]
  - Fatigue [Unknown]
  - Depression [Unknown]
  - Abdominal discomfort [Unknown]
  - Anxiety [Unknown]
  - Toxicity to various agents [Unknown]
  - Vulvovaginal pain [Unknown]
  - Acrochordon [Unknown]
  - Alopecia [Unknown]
